FAERS Safety Report 21017706 (Version 1)
Quarter: 2022Q2

REPORT INFORMATION
  Report Type: Spontaneous
  Country: CA (occurrence: CA)
  Receive Date: 20220628
  Receipt Date: 20220628
  Transmission Date: 20220721
  Serious: Yes (Hospitalization)
  Sender: FDA-Public Use
  Company Number: CA-ELI_LILLY_AND_COMPANY-CA202206007890

PATIENT
  Age: 71 Year
  Sex: Female

DRUGS (1)
  1. HUMULIN R [Suspect]
     Active Substance: INSULIN HUMAN
     Indication: Hyperkalaemia
     Dosage: 100 U, SINGLE
     Route: 041

REACTIONS (6)
  - Coma scale abnormal [Unknown]
  - Seizure [Unknown]
  - Hypoglycaemia [Unknown]
  - Incorrect dose administered [Unknown]
  - Accidental overdose [Unknown]
  - Off label use [Unknown]
